FAERS Safety Report 6348197-0 (Version None)
Quarter: 2009Q3

REPORT INFORMATION
  Report Type: 
  Country: None (occurrence: None)
  Receive Date: 20090908
  Receipt Date: 20090827
  Transmission Date: 20100115
  Serious: Yes (Hospitalization)
  Sender: FDA-Public Use
  Company Number: 2009AL005653

PATIENT
  Age: 23 Year
  Sex: Female

DRUGS (6)
  1. PHENYTOIN [Suspect]
     Indication: GRAND MAL CONVULSION
     Dosage: 300 MG; HS; PO
     Route: 048
  2. PANTOPRAZOLE SODIUM [Concomitant]
  3. DROTAVERINE [Concomitant]
  4. DIAZEPAM [Concomitant]
  5. DICLOFENAC [Concomitant]
  6. METOCLOPRAMIDE [Concomitant]

REACTIONS (14)
  - ABDOMINAL PAIN [None]
  - AREFLEXIA [None]
  - BLOOD PRESSURE INCREASED [None]
  - BLOOD SODIUM DECREASED [None]
  - ELECTROENCEPHALOGRAM ABNORMAL [None]
  - GRAND MAL CONVULSION [None]
  - HYPOTONIA [None]
  - INCOHERENT [None]
  - LOSS OF CONSCIOUSNESS [None]
  - PORPHYRIA ACUTE [None]
  - PUPILLARY REFLEX IMPAIRED [None]
  - SOMNOLENCE [None]
  - UNRESPONSIVE TO STIMULI [None]
  - VOMITING [None]
